FAERS Safety Report 11061213 (Version 1)
Quarter: 2015Q2

REPORT INFORMATION
  Report Type: Spontaneous
  Country: US (occurrence: US)
  Receive Date: 20150424
  Receipt Date: 20150424
  Transmission Date: 20150821
  Serious: No
  Sender: FDA-Public Use
  Company Number: US-AMGEN-USASP2015038551

PATIENT
  Age: 66 Year
  Sex: Male

DRUGS (2)
  1. ENBREL [Suspect]
     Active Substance: ETANERCEPT
     Indication: RHEUMATOID ARTHRITIS
     Dosage: 50 MG, QWK
     Route: 065
     Dates: start: 20141106
  2. METHOTREXATE [Concomitant]
     Active Substance: METHOTREXATE
     Dosage: 6 TABLETS, WEEKLY
     Dates: start: 2009

REACTIONS (7)
  - Injection site pain [Not Recovered/Not Resolved]
  - Nasopharyngitis [Recovered/Resolved]
  - Injection site reaction [Recovered/Resolved]
  - Joint stiffness [Not Recovered/Not Resolved]
  - Arthritis [Not Recovered/Not Resolved]
  - Headache [Not Recovered/Not Resolved]
  - Walking aid user [Not Recovered/Not Resolved]

NARRATIVE: CASE EVENT DATE: 201411
